FAERS Safety Report 10626892 (Version 1)
Quarter: 2014Q4

REPORT INFORMATION
  Report Type: Spontaneous
  Country: PT (occurrence: PT)
  Receive Date: 20141204
  Receipt Date: 20141204
  Transmission Date: 20150529
  Serious: Yes (Other)
  Sender: FDA-Public Use
  Company Number: PT-MYLANLABS-2014M1012508

PATIENT

DRUGS (3)
  1. GOSERELIN [Concomitant]
     Active Substance: GOSERELIN
     Indication: BREAST CANCER FEMALE
     Dosage: 4 WEEKLY
  2. OLANZAPINE. [Concomitant]
     Active Substance: OLANZAPINE
     Route: 065
  3. TAMOXIFEN [Suspect]
     Active Substance: TAMOXIFEN
     Indication: BREAST CANCER FEMALE
     Dosage: 20 MG, QD
     Route: 048

REACTIONS (1)
  - Delusional disorder, unspecified type [Recovering/Resolving]
